FAERS Safety Report 13880157 (Version 1)
Quarter: 2017Q3

REPORT INFORMATION
  Report Type: Report from Study
  Country: TR (occurrence: TR)
  Receive Date: 20170818
  Receipt Date: 20170818
  Transmission Date: 20171127
  Serious: Yes (Other)
  Sender: FDA-Public Use
  Company Number: TR-ROCHE-1973290

PATIENT
  Age: 74 Year
  Sex: Female
  Weight: 95 kg

DRUGS (1)
  1. ATEZOLIZUMAB. [Suspect]
     Active Substance: ATEZOLIZUMAB
     Indication: TRANSITIONAL CELL CARCINOMA
     Route: 042
     Dates: start: 20170511

REACTIONS (1)
  - Tumour pseudoprogression [Recovering/Resolving]

NARRATIVE: CASE EVENT DATE: 20170628
